FAERS Safety Report 6823279-5 (Version None)
Quarter: 2010Q3

REPORT INFORMATION
  Report Type: 
  Country: None (occurrence: None)
  Receive Date: 20100708
  Receipt Date: 20100628
  Transmission Date: 20110219
  Serious: Yes (Other)
  Sender: FDA-Public Use
  Company Number: US-AMGEN-QUU418215

PATIENT
  Sex: Female

DRUGS (28)
  1. ENBREL [Suspect]
     Indication: RHEUMATOID ARTHRITIS
     Route: 058
     Dates: start: 20090101, end: 20100621
  2. CRESTOR [Concomitant]
  3. WELLBUTRIN [Concomitant]
  4. BACLOFEN [Concomitant]
  5. ESTRADIOL [Concomitant]
  6. CELEXA [Concomitant]
  7. NEXIUM [Concomitant]
  8. TRENTAL [Concomitant]
  9. FOLIC ACID [Concomitant]
  10. PLAQUENIL [Concomitant]
  11. CLONAZEPAM [Concomitant]
  12. AMBIEN [Concomitant]
  13. SULFASALAZINE [Concomitant]
  14. ISOSORBIDE [Concomitant]
  15. METHOTREXATE [Concomitant]
  16. RESTASIS [Concomitant]
  17. ZYRTEC [Concomitant]
  18. TYLENOL W/ CODEINE NO. 3 [Concomitant]
  19. ZINC [Concomitant]
  20. CENTRUM [Concomitant]
  21. VITAMIN D [Concomitant]
  22. CALCIUM CARBONATE [Concomitant]
  23. FLAX SEED OIL [Concomitant]
  24. STOOL SOFTENER [Concomitant]
  25. VITAMIN B-12 [Concomitant]
  26. VITAMIN B6 [Concomitant]
  27. VITAMIN C [Concomitant]
  28. ASPIRIN [Concomitant]

REACTIONS (3)
  - DYSTONIA [None]
  - LIVER FUNCTION TEST ABNORMAL [None]
  - RHEUMATOID ARTHRITIS [None]
